FAERS Safety Report 8130123-5 (Version None)
Quarter: 2012Q1

REPORT INFORMATION
  Report Type: 
  Country: None (occurrence: None)
  Receive Date: 20120210
  Receipt Date: 20120207
  Transmission Date: 20120608
  Serious: Yes (Hospitalization, Other)
  Sender: FDA-Public Use
  Company Number: PHHO2010JP02807

PATIENT
  Sex: Female
  Weight: 54 kg

DRUGS (18)
  1. BLINDED PLACEBO [Suspect]
     Indication: BREAST CANCER METASTATIC
     Dosage: CODE NOT BROKEN
     Route: 048
     Dates: start: 20091222, end: 20101207
  2. FUROSEMIDE [Suspect]
  3. FLAVOXATE HYDROCHLORIDE [Concomitant]
     Indication: POLLAKIURIA
  4. AZUNOL [Concomitant]
     Indication: DECUBITUS ULCER
  5. COMPARATOR TRASTUZUMAB [Suspect]
     Indication: BREAST CANCER METASTATIC
     Dosage: 215 MG, UNK
     Dates: end: 20101207
  6. VANCOMYCIN [Concomitant]
  7. PACLITAXEL [Suspect]
     Indication: BREAST CANCER METASTATIC
     Dosage: 112 MG, UNK
     Dates: end: 20100315
  8. PACLITAXEL [Suspect]
     Dosage: UNK
     Dates: start: 20100329, end: 20101102
  9. HIRUDOID [Concomitant]
     Indication: DERMATOSIS
  10. IMIDAPRIL HYDROCHLORIDE [Concomitant]
     Indication: HYPERTENSION
  11. AMITRIPTYLINE HCL [Concomitant]
  12. AFINITOR [Suspect]
     Indication: BREAST CANCER METASTATIC
     Dosage: CODE NOT BROKEN
     Route: 048
     Dates: start: 20091222, end: 20101207
  13. PREDNISOLONE [Concomitant]
  14. CEFAZOLIN SODIUM [Concomitant]
  15. LOXOPROFEN SODIUM [Concomitant]
     Indication: PAIN
  16. SULFAMETHOXAZOLE AND TRIMETHOPRIM [Suspect]
  17. BLINDED NO TREATMENT RECEIVED [Suspect]
     Indication: BREAST CANCER METASTATIC
     Dosage: CODE NOT BROKEN
     Route: 048
     Dates: start: 20091222, end: 20101207
  18. LAXOBERON [Concomitant]
     Indication: CONSTIPATION

REACTIONS (14)
  - ASCITES [None]
  - PNEUMOCYSTIS JIROVECI PNEUMONIA [None]
  - CEREBRAL ATROPHY [None]
  - C-REACTIVE PROTEIN INCREASED [None]
  - ANAEMIA [None]
  - HYPERGLYCAEMIA [None]
  - BLOOD POTASSIUM DECREASED [None]
  - RENAL IMPAIRMENT [None]
  - CEREBRAL ISCHAEMIA [None]
  - CATHETER SITE INFECTION [None]
  - EPISTAXIS [None]
  - PLEURAL EFFUSION [None]
  - MEMORY IMPAIRMENT [None]
  - LIVER DISORDER [None]
